FAERS Safety Report 8387214-3 (Version None)
Quarter: 2012Q2

REPORT INFORMATION
  Report Type: 
  Country: None (occurrence: None)
  Receive Date: 20120525
  Receipt Date: 20120523
  Transmission Date: 20120825
  Serious: Yes (Other)
  Sender: FDA-Public Use
  Company Number: CA-PFIZER INC-2012124589

PATIENT
  Sex: Female

DRUGS (2)
  1. LINEZOLID [Suspect]
     Dosage: UNK
  2. LASIX [Concomitant]
     Indication: CARDIAC FAILURE
     Dosage: UNK

REACTIONS (2)
  - BLOOD CREATININE INCREASED [None]
  - RENAL FAILURE [None]
